FAERS Safety Report 17852403 (Version 1)
Quarter: 2020Q2

REPORT INFORMATION
  Report Type: Report from Study
  Country: GT (occurrence: GT)
  Receive Date: 20200602
  Receipt Date: 20200602
  Transmission Date: 20200714
  Serious: Yes (Other)
  Sender: FDA-Public Use
  Company Number: GT-SA-2020SA139737

PATIENT

DRUGS (2)
  1. HYDROCHLOROTHIAZIDE/IRBESARTAN [Suspect]
     Active Substance: HYDROCHLOROTHIAZIDE\IRBESARTAN
     Indication: HYPERTENSION
     Dosage: 1 DF (300 MG OF IRBESARTAN + 25 MG OF HYDROCHLOROTHIAZIDE), QD
     Route: 065
     Dates: start: 2018
  2. HYDROCHLOROTHIAZIDE/IRBESARTAN [Suspect]
     Active Substance: HYDROCHLOROTHIAZIDE\IRBESARTAN
     Dosage: 1 DF (300 MG OF IRBESARTAN + 25 MG OF HYDROCHLOROTHIAZIDE), QD
     Route: 065
     Dates: start: 202001

REACTIONS (8)
  - Ill-defined disorder [Unknown]
  - Cerebrovascular accident [Recovering/Resolving]
  - Therapy interrupted [Unknown]
  - Dementia [Unknown]
  - Dementia [Unknown]
  - Inability to afford medication [Unknown]
  - Seizure [Recovering/Resolving]
  - Depression [Unknown]

NARRATIVE: CASE EVENT DATE: 202001
